FAERS Safety Report 4497924-6 (Version None)
Quarter: 2004Q4

REPORT INFORMATION
  Report Type: 
  Country: None (occurrence: None)
  Receive Date: 20041105
  Receipt Date: 20041022
  Transmission Date: 20050328
  Serious: Yes (Other)
  Sender: FDA-Public Use
  Company Number: A-US2004-05784

PATIENT
  Age: 77 Year
  Sex: Female
  Weight: 63.9 kg

DRUGS (3)
  1. TRACLEER [Suspect]
     Indication: PULMONARY HYPERTENSION
     Dosage: 62.5 MG, BID, ORAL
     Route: 048
     Dates: start: 20040219, end: 20040315
  2. OXYGEN (OXYGEN) [Concomitant]
  3. DILTIAZEM [Concomitant]

REACTIONS (26)
  - ANOREXIA [None]
  - ANTINUCLEAR ANTIBODY POSITIVE [None]
  - ANXIETY [None]
  - BACK PAIN [None]
  - CHEST PAIN [None]
  - CORONARY ARTERY DISEASE [None]
  - COUGH [None]
  - DECREASED APPETITE [None]
  - DRUG INTOLERANCE [None]
  - DYSPNOEA [None]
  - FATIGUE [None]
  - FLUSHING [None]
  - GASTRITIS [None]
  - HEADACHE [None]
  - HYPERKALAEMIA [None]
  - INTERSTITIAL LUNG DISEASE [None]
  - MENTAL DISORDER [None]
  - NAUSEA [None]
  - NIGHT SWEATS [None]
  - NOCTURNAL DYSPNOEA [None]
  - PNEUMONIA [None]
  - PULMONARY FIBROSIS [None]
  - PYREXIA [None]
  - SCLERODERMA [None]
  - SJOGREN'S SYNDROME [None]
  - TOTAL LUNG CAPACITY DECREASED [None]
